FAERS Safety Report 15718442 (Version 6)
Quarter: 2021Q4

REPORT INFORMATION
  Report Type: Report from Study
  Country: US (occurrence: US)
  Receive Date: 20181213
  Receipt Date: 20211004
  Transmission Date: 20220303
  Serious: Yes (Hospitalization, Other)
  Sender: FDA-Public Use
  Company Number: US-UCBSA-2018053336

PATIENT
  Age: 36 Year
  Sex: Female
  Weight: 54 kg

DRUGS (15)
  1. CERTOLIZUMAB PEGOL [Suspect]
     Active Substance: CERTOLIZUMAB PEGOL
     Indication: Rheumatoid arthritis
     Dosage: 200 MG, 2X/MONTH
     Route: 058
     Dates: start: 20110701, end: 20190208
  2. CALCIUM [Concomitant]
     Active Substance: CALCIUM
     Indication: Product used for unknown indication
     Dosage: UNK
     Route: 048
     Dates: start: 20180525, end: 20180901
  3. CYMBALTA [Concomitant]
     Active Substance: DULOXETINE HYDROCHLORIDE
     Indication: Fibromyalgia
     Dosage: 30 MG, ONCE DAILY (QD)
     Route: 048
     Dates: start: 20150701
  4. FLUCONAZOLE [Concomitant]
     Active Substance: FLUCONAZOLE
     Indication: Fungal infection
     Dosage: 200 MG, ONCE DAILY (QD)
     Route: 048
     Dates: start: 20180725, end: 20180725
  5. FLUCONAZOLE [Concomitant]
     Active Substance: FLUCONAZOLE
     Dosage: 200 MG, ONCE DAILY (QD)
     Route: 048
     Dates: start: 20181126, end: 20181126
  6. FOLIC ACID [Concomitant]
     Active Substance: FOLIC ACID
     Indication: Fungal infection
     Dosage: 5 MG, ONCE DAILY (QD)
     Route: 048
     Dates: start: 20180525
  7. CANNABIDIOL [Concomitant]
     Active Substance: CANNABIDIOL
     Indication: Pain management
     Dosage: 0.6 ML, ONCE DAILY (QD)
     Route: 048
     Dates: start: 20180601, end: 20180630
  8. METHOTREXATE [Concomitant]
     Active Substance: METHOTREXATE
     Indication: Rheumatoid arthritis
     Dosage: 11 MG, WEEKLY (QW)
     Route: 048
     Dates: start: 20110701, end: 20180630
  9. Vitamin d with omega 3 [Concomitant]
     Indication: Product used for unknown indication
  10. PREDNISONE [Concomitant]
     Active Substance: PREDNISONE
     Indication: Rheumatoid arthritis
  11. VITAMINS [Concomitant]
     Active Substance: VITAMINS
     Indication: Product used for unknown indication
  12. TYLENOL EXTRA STRENGTH [Concomitant]
     Active Substance: ACETAMINOPHEN
     Indication: Arthralgia
  13. TYLENOL EXTRA STRENGTH [Concomitant]
     Active Substance: ACETAMINOPHEN
     Indication: Headache
  14. VITAMIN B COMPLEX [Concomitant]
     Active Substance: CYANOCOBALAMIN\DEXPANTHENOL\NIACINAMIDE\PYRIDOXINE HYDROCHLORIDE\RIBOFLAVIN 5^-PHOSPHATE SODIUM\THIA
     Indication: Product used for unknown indication
  15. VITAMIN D [Concomitant]
     Active Substance: VITAMIN D NOS
     Indication: Product used for unknown indication

REACTIONS (9)
  - Kidney infection [Recovered/Resolved]
  - Rheumatoid arthritis [Unknown]
  - Pulmonary oedema [Unknown]
  - Cardiac failure [Unknown]
  - Eclampsia [Unknown]
  - Road traffic accident [Recovered/Resolved]
  - Injury [Unknown]
  - Vaginal infection [Recovered/Resolved]
  - Maternal exposure before pregnancy [Unknown]

NARRATIVE: CASE EVENT DATE: 20180608
